FAERS Safety Report 10331011 (Version 5)
Quarter: 2018Q3

REPORT INFORMATION
  Report Type: Report from Study
  Country: US (occurrence: US)
  Receive Date: 20140722
  Receipt Date: 20180926
  Transmission Date: 20181010
  Serious: Yes (Other)
  Sender: FDA-Public Use
  Company Number: US-SA-2014SA095884

PATIENT
  Age: 34 Year
  Sex: Female

DRUGS (1)
  1. AGALSIDASE BETA [Suspect]
     Active Substance: AGALSIDASE BETA
     Indication: FABRY^S DISEASE
     Dosage: 85MG, QOW
     Route: 041
     Dates: start: 20130506

REACTIONS (11)
  - Urine analysis abnormal [Unknown]
  - Osteopenia [Not Recovered/Not Resolved]
  - Toothache [Not Recovered/Not Resolved]
  - Thrombosis [Not Recovered/Not Resolved]
  - Affective disorder [Not Recovered/Not Resolved]
  - Pyrexia [Not Recovered/Not Resolved]
  - Osteoporosis [Not Recovered/Not Resolved]
  - Dental caries [Recovering/Resolving]
  - Stress [Not Recovered/Not Resolved]
  - Foot fracture [Not Recovered/Not Resolved]
  - Tooth disorder [Not Recovered/Not Resolved]

NARRATIVE: CASE EVENT DATE: 201404
